FAERS Safety Report 13002902 (Version 1)
Quarter: 2016Q4

REPORT INFORMATION
  Report Type: Spontaneous
  Country: US (occurrence: US)
  Receive Date: 20161206
  Receipt Date: 20161206
  Transmission Date: 20170207
  Serious: No
  Sender: FDA-Public Use
  Company Number: US-JNJFOC-20161115286

PATIENT
  Age: 30 Year
  Sex: Male
  Weight: 65.32 kg

DRUGS (1)
  1. STELARA [Suspect]
     Active Substance: USTEKINUMAB
     Indication: CROHN^S DISEASE
     Route: 042
     Dates: start: 20161110

REACTIONS (2)
  - Haematochezia [Unknown]
  - Arthralgia [Unknown]

NARRATIVE: CASE EVENT DATE: 20161113
